FAERS Safety Report 5679383-0 (Version None)
Quarter: 2008Q1

REPORT INFORMATION
  Report Type: 
  Country: None (occurrence: None)
  Receive Date: 20080325
  Receipt Date: 20080317
  Transmission Date: 20080703
  Serious: Yes (Other)
  Sender: FDA-Public Use
  Company Number: US-ELI_LILLY_AND_COMPANY-US200801003262

PATIENT
  Sex: Female
  Weight: 113.38 kg

DRUGS (1)
  1. BYETTA [Suspect]
     Indication: DIABETES MELLITUS
     Dosage: 10 UG, 2/D
     Dates: start: 20060501, end: 20070102

REACTIONS (6)
  - ABDOMINAL PAIN [None]
  - DRUG INEFFECTIVE [None]
  - NAUSEA [None]
  - PANCREATITIS ACUTE [None]
  - VOMITING [None]
  - WEIGHT DECREASED [None]
